FAERS Safety Report 4622633-X (Version None)
Quarter: 2005Q1

REPORT INFORMATION
  Report Type: 
  Country: None (occurrence: None)
  Receive Date: 20050328
  Receipt Date: 20050328
  Transmission Date: 20050727
  Serious: No
  Sender: FDA-Public Use
  Company Number: None

PATIENT
  Age: 32 Year
  Sex: Female

DRUGS (1)
  1. GABITRIL [Suspect]
     Indication: ANXIETY
     Dosage: ORAL [2 WEEKS INCREASE DOSE Q 2 DAYS]
     Route: 048

REACTIONS (1)
  - RASH PRURITIC [None]
